FAERS Safety Report 19929610 (Version 2)
Quarter: 2021Q4

REPORT INFORMATION
  Report Type: Report from Study
  Country: US (occurrence: US)
  Receive Date: 20211007
  Receipt Date: 20211111
  Transmission Date: 20220303
  Serious: Yes (Hospitalization, Other)
  Sender: FDA-Public Use
  Company Number: US-TAKEDA-2021TUS060703

PATIENT
  Age: 37 Year
  Sex: Male
  Weight: 77 kg

DRUGS (6)
  1. BRIGATINIB [Suspect]
     Active Substance: BRIGATINIB
     Indication: Lung neoplasm malignant
     Dosage: 90 MILLIGRAM
     Route: 065
  2. BRIGATINIB [Suspect]
     Active Substance: BRIGATINIB
     Indication: Brain neoplasm malignant
     Dosage: 60 MILLIGRAM, QD
     Route: 065
     Dates: start: 20210914
  3. BRIGATINIB [Suspect]
     Active Substance: BRIGATINIB
     Indication: Malignant melanoma
  4. TYLENOL [Concomitant]
     Active Substance: ACETAMINOPHEN
     Indication: Body temperature
     Dosage: UNK
     Route: 065
  5. DEXAMETHASONE [Concomitant]
     Active Substance: DEXAMETHASONE
     Indication: Nausea
     Dosage: UNK
     Route: 065
  6. DEXAMETHASONE [Concomitant]
     Active Substance: DEXAMETHASONE
     Indication: Cough

REACTIONS (11)
  - Seizure [Not Recovered/Not Resolved]
  - Gait inability [Not Recovered/Not Resolved]
  - Pneumonia [Not Recovered/Not Resolved]
  - Headache [Not Recovered/Not Resolved]
  - Vomiting [Not Recovered/Not Resolved]
  - Nausea [Not Recovered/Not Resolved]
  - Aphasia [Unknown]
  - Illness [Unknown]
  - Pain in extremity [Unknown]
  - Visual impairment [Unknown]
  - Off label use [Unknown]

NARRATIVE: CASE EVENT DATE: 20211003
